FAERS Safety Report 10609675 (Version 1)
Quarter: 2014Q4

REPORT INFORMATION
  Report Type: Spontaneous
  Country: IT (occurrence: IT)
  Receive Date: 20141126
  Receipt Date: 20141126
  Transmission Date: 20150529
  Serious: Yes (Hospitalization)
  Sender: FDA-Public Use
  Company Number: IT-ELI_LILLY_AND_COMPANY-IT201411006879

PATIENT
  Age: 26 Year
  Sex: Male

DRUGS (1)
  1. FORSTEO [Suspect]
     Active Substance: TERIPARATIDE
     Indication: SPINAL COMPRESSION FRACTURE
     Dosage: 20 UG, QD
     Route: 065

REACTIONS (6)
  - Dyspnoea [Unknown]
  - Nausea [Unknown]
  - Hypersensitivity [Unknown]
  - Headache [Unknown]
  - Cyanosis [Unknown]
  - Off label use [Unknown]
